FAERS Safety Report 9037653 (Version 1)
Quarter: 2013Q1

REPORT INFORMATION
  Report Type: Spontaneous
  Country: US (occurrence: US)
  Receive Date: 20130129
  Receipt Date: 20130129
  Transmission Date: 20140127
  Serious: No
  Sender: FDA-Public Use
  Company Number: US-BIOGENIDEC-2013BI006181

PATIENT
  Sex: Female

DRUGS (5)
  1. AVONEX [Suspect]
     Indication: MULTIPLE SCLEROSIS
     Route: 030
     Dates: start: 20110911
  2. DIAZEPAM [Concomitant]
     Indication: PROPHYLAXIS
  3. MECLIZINE [Concomitant]
     Indication: PROPHYLAXIS
  4. IBUPROFEN [Concomitant]
     Indication: PREMEDICATION
  5. TYLENOL [Concomitant]
     Indication: ARTHRITIS

REACTIONS (2)
  - Nuclear magnetic resonance imaging abnormal [Unknown]
  - Chills [Recovered/Resolved]
